FAERS Safety Report 10995190 (Version 8)
Quarter: 2015Q3

REPORT INFORMATION
  Report Type: Report from Study
  Country: TW (occurrence: TW)
  Receive Date: 20150407
  Receipt Date: 20150803
  Transmission Date: 20151125
  Serious: Yes (Other)
  Sender: FDA-Public Use
  Company Number: TW-009507513-1504TWN001022

PATIENT
  Age: 48 Year
  Sex: Male
  Weight: 64.5 kg

DRUGS (2)
  1. PEMBROLIZUMAB. [Suspect]
     Active Substance: PEMBROLIZUMAB
     Dosage: 10 MG/KG, QOW (EVERY 2 WEEKS)
     Route: 042
     Dates: start: 20150310, end: 20150310
  2. PEMBROLIZUMAB. [Suspect]
     Active Substance: PEMBROLIZUMAB
     Indication: NEOPLASM
     Dosage: 10 MG/KG, QOW (EVERY 2 WEEKS)
     Route: 042
     Dates: start: 20140603, end: 20150224

REACTIONS (2)
  - Hepatitis [Recovered/Resolved]
  - Blood creatine phosphokinase increased [Recovered/Resolved]

NARRATIVE: CASE EVENT DATE: 20150324
